FAERS Safety Report 4779935-6 (Version None)
Quarter: 2005Q3

REPORT INFORMATION
  Report Type: 
  Country: None (occurrence: None)
  Receive Date: 20050927
  Receipt Date: 20050826
  Transmission Date: 20060218
  Serious: Yes (Other)
  Sender: FDA-Public Use
  Company Number: US-GLAXOSMITHKLINE-A0571998A

PATIENT
  Age: 58 Year
  Sex: Female

DRUGS (4)
  1. WELLBUTRIN XL [Suspect]
     Indication: SMOKING CESSATION THERAPY
     Dosage: 300MG PER DAY
     Route: 048
     Dates: start: 20050812
  2. CARDIZEM [Concomitant]
  3. ALPRAZOLAM [Concomitant]
  4. TRAZODONE [Concomitant]

REACTIONS (5)
  - DEPRESSION [None]
  - DRUG SCREEN POSITIVE [None]
  - SUICIDAL IDEATION [None]
  - URINARY TRACT INFECTION [None]
  - URINE CANNABINOIDS INCREASED [None]
